FAERS Safety Report 4808199-X (Version None)
Quarter: 2005Q4

REPORT INFORMATION
  Report Type: 
  Country: None (occurrence: None)
  Receive Date: 20051021
  Receipt Date: 20051007
  Transmission Date: 20060501
  Serious: Yes (Hospitalization)
  Sender: FDA-Public Use
  Company Number: HQWYE397217FEB05

PATIENT
  Age: 53 Year
  Sex: Female

DRUGS (16)
  1. RAPAMUNE [Suspect]
     Indication: PROPHYLAXIS AGAINST TRANSPLANT REJECTION
     Dosage: SEE IMAGE
     Route: 048
     Dates: start: 20050112, end: 20050125
  2. RAPAMUNE [Suspect]
     Indication: PROPHYLAXIS AGAINST TRANSPLANT REJECTION
     Dosage: SEE IMAGE
     Route: 048
     Dates: start: 20050126, end: 20050131
  3. CELLCEPT [Suspect]
     Indication: PROPHYLAXIS AGAINST TRANSPLANT REJECTION
     Dosage: SEE IMAGE
     Route: 048
     Dates: start: 20041030, end: 20050127
  4. CELLCEPT [Suspect]
     Indication: PROPHYLAXIS AGAINST TRANSPLANT REJECTION
     Dosage: SEE IMAGE
     Route: 048
     Dates: start: 20050128, end: 20050131
  5. MEDROL [Suspect]
     Indication: PROPHYLAXIS AGAINST TRANSPLANT REJECTION
     Dosage: SEE IMAGE
     Route: 048
     Dates: start: 20041030, end: 20050123
  6. MEDROL [Suspect]
     Indication: PROPHYLAXIS AGAINST TRANSPLANT REJECTION
     Dosage: SEE IMAGE
     Route: 048
     Dates: start: 20050124
  7. ATENOLOL [Concomitant]
  8. ADALAT [Concomitant]
  9. BACTRIM DS [Concomitant]
  10. LIPITOR [Concomitant]
  11. NOVOLOG [Concomitant]
  12. LANTUS [Concomitant]
  13. AVAPRO [Concomitant]
  14. MAG-OX (MAGNESIUM OXIDE) [Concomitant]
  15. K-PHOS (POTASSIUM PHOSPHATE MONOBASIC) [Concomitant]
  16. PROTONIX [Concomitant]

REACTIONS (9)
  - ABDOMINAL HAEMATOMA [None]
  - ABDOMINAL PAIN [None]
  - ASCITES [None]
  - BLOOD CREATININE INCREASED [None]
  - CLOSTRIDIUM COLITIS [None]
  - ILEUS PARALYTIC [None]
  - PANCYTOPENIA [None]
  - SEROMA [None]
  - SINUS TACHYCARDIA [None]
